FAERS Safety Report 7500912-6 (Version None)
Quarter: 2011Q2

REPORT INFORMATION
  Report Type: 
  Country: None (occurrence: None)
  Receive Date: 20110524
  Receipt Date: 20110518
  Transmission Date: 20111010
  Serious: Yes (Other)
  Sender: FDA-Public Use
  Company Number: US-PFIZER INC-2008025235

PATIENT
  Sex: Female
  Weight: 68.9 kg

DRUGS (9)
  1. DITROPAN [Suspect]
  2. LYRICA [Suspect]
     Indication: NEUROPATHY PERIPHERAL
     Dosage: UNK
  3. CYMBALTA [Suspect]
     Indication: NEUROPATHY PERIPHERAL
     Dosage: UNK
     Route: 048
  4. VITAMINS [Concomitant]
     Dosage: UNK
     Route: 048
  5. LYRICA [Suspect]
     Dosage: 25 MG, DAILY
     Route: 048
     Dates: start: 20110407, end: 20110504
  6. ATENOLOL [Suspect]
     Dosage: UNK
     Route: 048
  7. LIDOCAINE [Suspect]
     Indication: NEUROPATHY PERIPHERAL
     Dosage: UNK
     Route: 062
  8. CAPSAICIN [Suspect]
     Indication: NEUROPATHY PERIPHERAL
     Dosage: UNK
  9. TOPROL-XL [Concomitant]
     Dosage: UNK
     Route: 048

REACTIONS (11)
  - INSOMNIA [None]
  - PAIN [None]
  - FATIGUE [None]
  - ANXIETY [None]
  - DRUG INEFFECTIVE [None]
  - ABDOMINAL PAIN UPPER [None]
  - ATAXIA [None]
  - GAIT DISTURBANCE [None]
  - MYALGIA [None]
  - DIZZINESS [None]
  - SOMNOLENCE [None]
